FAERS Safety Report 22123095 (Version 1)
Quarter: 2023Q1

REPORT INFORMATION
  Report Type: Spontaneous
  Country: IN (occurrence: IN)
  Receive Date: 20230322
  Receipt Date: 20230322
  Transmission Date: 20230418
  Serious: Yes (Hospitalization)
  Sender: FDA-Public Use
  Company Number: IN-CADILA HEALTHCARE LIMITED-IN-ZYDUS-089383

PATIENT

DRUGS (1)
  1. OLANZAPINE [Suspect]
     Active Substance: OLANZAPINE
     Indication: Schizophrenia
     Dosage: 300 MILLIGRAM
     Route: 065

REACTIONS (9)
  - Post-injection delirium sedation syndrome [Recovering/Resolving]
  - Disorientation [Recovering/Resolving]
  - Hyperventilation [Recovering/Resolving]
  - Unresponsive to stimuli [Recovering/Resolving]
  - Hyponatraemia [Recovering/Resolving]
  - Restlessness [Recovering/Resolving]
  - Somnolence [Recovering/Resolving]
  - Vomiting [Recovering/Resolving]
  - Agitation [Recovering/Resolving]
